FAERS Safety Report 8476204-8 (Version None)
Quarter: 2012Q2

REPORT INFORMATION
  Report Type: 
  Country: None (occurrence: None)
  Receive Date: 20120628
  Receipt Date: 20120619
  Transmission Date: 20120825
  Serious: Yes (Hospitalization)
  Sender: FDA-Public Use
  Company Number: US-ACTELION-A-US2012-66310

PATIENT

DRUGS (18)
  1. EPOPROSTENOL SODIUM [Suspect]
     Indication: PULMONARY ARTERIAL HYPERTENSION
     Dosage: 24 NG/KG, PER MIN
     Route: 042
     Dates: start: 20110902
  2. TRACLEER [Suspect]
     Indication: PULMONARY ARTERIAL HYPERTENSION
     Dosage: 125 MG, BID
     Route: 048
     Dates: start: 20040927
  3. ZYRTEC [Concomitant]
  4. FERROUS SULFATE TAB [Concomitant]
  5. LASIX [Concomitant]
  6. ZYLOPRIM [Concomitant]
  7. NORCO [Concomitant]
  8. ZAROXOLYN [Concomitant]
  9. SALSALATE [Concomitant]
  10. COUMADIN [Concomitant]
  11. LEVOTHYROXINE [Concomitant]
  12. POTASSIUM CHLORIDE [Concomitant]
  13. PLAQUENIL [Concomitant]
  14. SILDENAFIL [Concomitant]
  15. ACETAMINOPHEN [Concomitant]
  16. VANCOMYCIN [Concomitant]
  17. NEURONTIN [Concomitant]
  18. SPIRONOLACTONE [Concomitant]

REACTIONS (12)
  - PNEUMONIA [None]
  - COUGH [None]
  - SKIN ULCER [None]
  - CHEST DISCOMFORT [None]
  - CONFUSIONAL STATE [None]
  - LEUKOCYTOSIS [None]
  - LOSS OF CONSCIOUSNESS [None]
  - CLOSTRIDIUM DIFFICILE COLITIS [None]
  - FAECAL INCONTINENCE [None]
  - MENTAL STATUS CHANGES [None]
  - FALL [None]
  - VENOUS PRESSURE JUGULAR INCREASED [None]
